FAERS Safety Report 7770040-3 (Version None)
Quarter: 2011Q3

REPORT INFORMATION
  Report Type: 
  Country: None (occurrence: None)
  Receive Date: 20110922
  Receipt Date: 20101214
  Transmission Date: 20111222
  Serious: Yes (Other)
  Sender: FDA-Public Use
  Company Number: US-ASTRAZENECA-2010SE50621

PATIENT
  Age: 62 Year
  Sex: Female

DRUGS (17)
  1. SEROQUEL XR [Suspect]
     Indication: SUICIDAL IDEATION
     Route: 048
     Dates: start: 20100801
  2. XANAX [Suspect]
     Indication: ANXIETY
  3. CYMBALTA [Concomitant]
     Dates: start: 20100901
  4. SEROQUEL XR [Suspect]
     Indication: DEPRESSION
     Route: 048
     Dates: start: 20100801
  5. SEROQUEL XR [Suspect]
     Route: 048
     Dates: start: 20100901, end: 20101001
  6. NEURONTIN [Concomitant]
  7. METOPROLOL TARTRATE [Concomitant]
  8. XANAX [Suspect]
  9. SEROQUEL XR [Suspect]
     Route: 048
     Dates: start: 20100901, end: 20101001
  10. SEROQUEL XR [Suspect]
     Indication: BIPOLAR DISORDER
     Route: 048
     Dates: start: 20100801
  11. SEROQUEL XR [Suspect]
     Route: 048
     Dates: start: 20100901, end: 20101001
  12. SEROQUEL XR [Suspect]
     Route: 048
     Dates: start: 20100901, end: 20101001
  13. XANAX [Suspect]
     Indication: STRESS
  14. XANAX [Suspect]
  15. SEROQUEL XR [Suspect]
     Indication: INTENTIONAL SELF-INJURY
     Route: 048
     Dates: start: 20100801
  16. LASIX [Concomitant]
  17. HYDROCODONE [Concomitant]
     Indication: PAIN

REACTIONS (2)
  - SUICIDAL IDEATION [None]
  - DRUG DOSE OMISSION [None]
